FAERS Safety Report 15267427 (Version 3)
Quarter: 2018Q3

REPORT INFORMATION
  Report Type: Spontaneous
  Country: US (occurrence: US)
  Receive Date: 20180811
  Receipt Date: 20180928
  Transmission Date: 20181010
  Serious: Yes (Other)
  Sender: FDA-Public Use
  Company Number: US-JNJFOC-20180733345

PATIENT
  Sex: Female
  Weight: 76.66 kg

DRUGS (1)
  1. ORTHO CYCLEN [Suspect]
     Active Substance: ETHINYL ESTRADIOL\NORGESTIMATE
     Indication: CONTRACEPTION
     Route: 048
     Dates: start: 20180620

REACTIONS (4)
  - Pregnancy on oral contraceptive [Unknown]
  - Exposure during pregnancy [Unknown]
  - Nausea [Unknown]
  - Vomiting [Unknown]
